FAERS Safety Report 24457495 (Version 1)
Quarter: 2024Q4

REPORT INFORMATION
  Report Type: Spontaneous
  Country: CN (occurrence: CN)
  Receive Date: 20241018
  Receipt Date: 20241018
  Transmission Date: 20250115
  Serious: No
  Sender: ROCHE
  Company Number: CN-BoehringerIngelheim-2023-BI-261218

PATIENT
  Age: 71 Year
  Sex: Male
  Weight: 73.1 kg

DRUGS (2)
  1. ALTEPLASE [Suspect]
     Active Substance: ALTEPLASE
     Indication: Thrombolysis
     Dosage: FIRSTLY 6.5MG OF INTRAVENOUS INFUSION FOR 1 MINUTE,
     Route: 042
     Dates: start: 20230825
  2. ALTEPLASE [Suspect]
     Active Substance: ALTEPLASE
     Dosage: FIRSTLY 6.5MG OF INTRAVENOUS INFUSION FOR 1 MINUTE, AND THE REST WAS PUMPED IN FOR 1 HOUR
     Route: 042
     Dates: end: 20230825

REACTIONS (1)
  - Gingival bleeding [Recovering/Resolving]

NARRATIVE: CASE EVENT DATE: 20230825
